FAERS Safety Report 10233689 (Version 1)
Quarter: 2014Q2

REPORT INFORMATION
  Report Type: Spontaneous
  Country: US (occurrence: None)
  Receive Date: 20140611
  Receipt Date: 20140611
  Transmission Date: 20141212
  Serious: Yes (Hospitalization)
  Sender: FDA-Public Use
  Company Number: None

PATIENT
  Age: 69 Year
  Sex: Male
  Weight: 72.57 kg

DRUGS (6)
  1. ABRAXANE [Suspect]
     Indication: PANCREATIC CARCINOMA
     Dosage: 275 MG IV, Q2 WKS
     Route: 042
     Dates: start: 20140528
  2. OXALIPLATIN [Suspect]
     Route: 042
     Dates: start: 20140528
  3. FLUCONAZOLE [Concomitant]
  4. ENOXAPARIN [Concomitant]
  5. OXYCODONE [Concomitant]
  6. LORAZEPAM [Concomitant]

REACTIONS (1)
  - Pulmonary embolism [None]
